FAERS Safety Report 10019911 (Version 2)
Quarter: 2014Q2

REPORT INFORMATION
  Report Type: Spontaneous
  Country: US (occurrence: US)
  Receive Date: 20140318
  Receipt Date: 20140618
  Transmission Date: 20141212
  Serious: No
  Sender: FDA-Public Use
  Company Number: US-GALDERMA-US14000403

PATIENT
  Age: 57 Year
  Sex: Female

DRUGS (6)
  1. MIRVASO (BRIMONIDINE) TOPICAL GEL, 0.33% [Suspect]
     Indication: ROSACEA
     Dosage: 0.33%
     Route: 061
     Dates: start: 20140128, end: 20140128
  2. CERAVE CLEANSER [Concomitant]
     Indication: THERAPEUTIC SKIN CARE TOPICAL
     Route: 061
     Dates: start: 2010
  3. EQUATE MOISTURIZER FOR SENSITIVE SKIN WITH SPF [Concomitant]
     Indication: DRY SKIN PROPHYLAXIS
     Route: 061
     Dates: start: 201306
  4. EQUATE MOISTURIZER FOR SENSITIVE SKIN WITH SPF [Concomitant]
     Indication: PROPHYLAXIS AGAINST SOLAR RADIATION
  5. COVER GIRL FOUNDATION [Concomitant]
     Indication: THERAPEUTIC SKIN CARE TOPICAL
     Route: 061
     Dates: start: 1984
  6. CENTRUM DAILY VITAMIN [Concomitant]
     Indication: SUPPLEMENTATION THERAPY
     Route: 048
     Dates: start: 2001

REACTIONS (7)
  - Flushing [Recovered/Resolved]
  - Feeling hot [Recovered/Resolved]
  - Skin discomfort [Recovered/Resolved]
  - Skin burning sensation [Recovered/Resolved]
  - Erythema [Recovered/Resolved]
  - Condition aggravated [Recovered/Resolved]
  - Rebound effect [Recovered/Resolved]
